FAERS Safety Report 16949022 (Version 2)
Quarter: 2019Q4

REPORT INFORMATION
  Report Type: Report from Study
  Country: BR (occurrence: BR)
  Receive Date: 20191023
  Receipt Date: 20191030
  Transmission Date: 20200122
  Serious: No
  Sender: FDA-Public Use
  Company Number: PHHY2019BR224347

PATIENT
  Age: 62 Year
  Sex: Female

DRUGS (2)
  1. COSENTYX [Suspect]
     Active Substance: SECUKINUMAB
     Indication: PRODUCT USED FOR UNKNOWN INDICATION
     Dosage: 2 DF (AUTOINJECTOR FLUID)
     Route: 065
     Dates: start: 20190923
  2. COSENTYX [Suspect]
     Active Substance: SECUKINUMAB
     Dosage: 2 DF (AUTOINJECTOR FLUID)
     Route: 065
     Dates: start: 20191014

REACTIONS (13)
  - Hypersomnia [Unknown]
  - Pruritus [Not Recovered/Not Resolved]
  - Incision site pruritus [Recovered/Resolved]
  - Anal pruritus [Unknown]
  - Malaise [Not Recovered/Not Resolved]
  - Psoriasis [Unknown]
  - Injection site haemorrhage [Unknown]
  - Incision site erythema [Recovered/Resolved]
  - Influenza [Unknown]
  - Skin fissures [Unknown]
  - Skin lesion [Not Recovered/Not Resolved]
  - Sleep disorder [Unknown]
  - Skin haemorrhage [Unknown]

NARRATIVE: CASE EVENT DATE: 20190923
